FAERS Safety Report 5597297-1 (Version None)
Quarter: 2008Q1

REPORT INFORMATION
  Report Type: 
  Country: None (occurrence: None)
  Receive Date: 20080121
  Receipt Date: 20080110
  Transmission Date: 20080703
  Serious: Yes (Life-Threatening, Hospitalization)
  Sender: FDA-Public Use
  Company Number: US-ROCHE-540547

PATIENT
  Age: 87 Year
  Sex: Male

DRUGS (2)
  1. XELODA [Suspect]
     Indication: COLORECTAL CANCER
     Dosage: PATIENT WAS GIVEN PRESCRIPTION FOR 150 MG TABLETS AT ELEVEN TABLETS TWICE A DAY.  WAS DISPENSED 500+
     Route: 048
     Dates: start: 20071215, end: 20080110
  2. LASIX [Concomitant]

REACTIONS (8)
  - ASTHENIA [None]
  - DEHYDRATION [None]
  - INTESTINAL FUNCTIONAL DISORDER [None]
  - OEDEMA PERIPHERAL [None]
  - OROPHARYNGEAL BLISTERING [None]
  - OVERDOSE [None]
  - RENAL FAILURE [None]
  - SWELLING FACE [None]
